FAERS Safety Report 17065703 (Version 1)
Quarter: 2019Q4

REPORT INFORMATION
  Report Type: Spontaneous
  Country: SE (occurrence: SE)
  Receive Date: 20191122
  Receipt Date: 20191122
  Transmission Date: 20200122
  Serious: Yes (Hospitalization)
  Sender: FDA-Public Use
  Company Number: SE-ASTRAZENECA-2019SF62885

PATIENT
  Sex: Female

DRUGS (3)
  1. OXASCAND [Suspect]
     Active Substance: OXAZEPAM
     Dosage: 2-3 TABLETS
     Route: 048
     Dates: start: 20180429, end: 20180429
  2. LERGIGAN (PROMETHAZINE HYDROCHLORIDE) [Suspect]
     Active Substance: PROMETHAZINE HYDROCHLORIDE
     Dosage: MAX 14X25 MG
     Route: 048
     Dates: start: 20180429, end: 20180429
  3. QUETIAPINE. [Suspect]
     Active Substance: QUETIAPINE
     Dosage: 2-3 TABLETS
     Route: 048
     Dates: start: 20180429, end: 20180429

REACTIONS (2)
  - Intentional self-injury [Unknown]
  - Intentional overdose [Unknown]

NARRATIVE: CASE EVENT DATE: 20180429
